FAERS Safety Report 4409808-X (Version None)
Quarter: 2004Q3

REPORT INFORMATION
  Report Type: 
  Country: None (occurrence: None)
  Receive Date: 20040723
  Receipt Date: 20040712
  Transmission Date: 20050211
  Serious: No
  Sender: FDA-Public Use
  Company Number: 04USA0128

PATIENT
  Sex: Male
  Weight: 126.1 kg

DRUGS (3)
  1. GLIADEL [Suspect]
     Indication: GLIOBLASTOMA MULTIFORME
     Dosage: (7.7 MG PER WAFER-MAX OF 8)
     Dates: start: 20040617
  2. 06-BENZYLGUANINE (06-BG) [Suspect]
     Indication: GLIOBLASTOMA MULTIFORME
     Dosage: (120MG/M2 INFUSION X 5 DAYS)
     Dates: start: 20040617, end: 20040622
  3. KAPPRA [Concomitant]

REACTIONS (6)
  - DEEP VEIN THROMBOSIS [None]
  - HYPERGLYCAEMIA [None]
  - POST PROCEDURAL COMPLICATION [None]
  - PSEUDOMENINGOCELE [None]
  - STAPHYLOCOCCAL INFECTION [None]
  - SUTURE RELATED COMPLICATION [None]
